FAERS Safety Report 8558159-0 (Version None)
Quarter: 2012Q3

REPORT INFORMATION
  Report Type: 
  Country: None (occurrence: None)
  Receive Date: 20120801
  Receipt Date: 20120726
  Transmission Date: 20120928
  Serious: Yes (Hospitalization, Other)
  Sender: FDA-Public Use
  Company Number: US-AMGEN-USASP2012011773

PATIENT
  Sex: Female

DRUGS (3)
  1. PROLIA [Suspect]
     Indication: OSTEOPOROSIS POSTMENOPAUSAL
     Dosage: UNK
     Dates: start: 20111122
  2. PROLIA [Suspect]
     Dosage: UNK
     Dates: start: 20120501
  3. DORYX [Concomitant]
     Dosage: UNK
     Dates: start: 20111122

REACTIONS (4)
  - SPINAL COMPRESSION FRACTURE [None]
  - OPEN WOUND [None]
  - NAUSEA [None]
  - VOMITING [None]
